FAERS Safety Report 9087295 (Version 3)
Quarter: 2013Q4

REPORT INFORMATION
  Report Type: Spontaneous
  Country: FR (occurrence: FR)
  Receive Date: 20130131
  Receipt Date: 20131029
  Transmission Date: 20140711
  Serious: Yes (Other)
  Sender: FDA-Public Use
  Company Number: FR-PFIZER INC-2013031314

PATIENT
  Age: 71 Year
  Sex: Female

DRUGS (8)
  1. ALDACTONE [Suspect]
     Indication: HYPERTENSION
     Dosage: 75 MG DAILY
     Route: 048
  2. KIVEXA [Suspect]
     Indication: HIV INFECTION
     Dosage: UNK
     Route: 048
  3. LUCENTIS [Suspect]
     Indication: AGE-RELATED MACULAR DEGENERATION
     Dosage: UNK
     Route: 031
  4. SUSTIVA [Suspect]
     Indication: HIV INFECTION
     Dosage: UNK
     Route: 048
  5. CARTEOL [Suspect]
     Indication: AGE-RELATED MACULAR DEGENERATION
     Dosage: UNK
     Route: 047
  6. TRAVATAN [Suspect]
     Dosage: UNK
     Route: 047
  7. MONO-TILDIEM [Suspect]
     Dosage: 300 MG DAILY
     Route: 048
  8. CRESTOR [Suspect]
     Dosage: 5 MG
     Route: 048

REACTIONS (1)
  - Hypertrophic cardiomyopathy [Not Recovered/Not Resolved]
